FAERS Safety Report 9390177 (Version 1)
Quarter: 2013Q3

REPORT INFORMATION
  Report Type: Spontaneous
  Country: US (occurrence: US)
  Receive Date: 20130708
  Receipt Date: 20130708
  Transmission Date: 20140515
  Serious: No
  Sender: FDA-Public Use
  Company Number: US-AMGEN-USASP2013041935

PATIENT
  Age: 60 Year
  Sex: Female
  Weight: 157.82 kg

DRUGS (7)
  1. ENBREL [Suspect]
     Indication: PSORIASIS
     Dosage: 50 MG, 2 TIMES/WK
     Route: 058
     Dates: start: 20130425
  2. EFFEXOR [Concomitant]
     Indication: BIPOLAR DISORDER
     Dosage: 75 MG, QD
     Route: 048
  3. XANAX [Concomitant]
     Indication: BIPOLAR DISORDER
     Dosage: 0.5 MG, TID
     Route: 048
  4. LAMOTRIGINE [Concomitant]
     Indication: BIPOLAR DISORDER
     Dosage: 25 MG, BID
     Route: 048
  5. TEGRETOL [Concomitant]
     Dosage: 200 MG, QD
     Route: 048
  6. ALDACTONE                          /00006201/ [Concomitant]
     Dosage: 50 MG, QD
     Route: 048
  7. SAPHRIS [Concomitant]
     Dosage: 10 MG, UNK
     Route: 060

REACTIONS (2)
  - Weight increased [Not Recovered/Not Resolved]
  - Psoriasis [Recovered/Resolved]
